FAERS Safety Report 24814217 (Version 4)
Quarter: 2025Q3

REPORT INFORMATION
  Report Type: Spontaneous
  Country: US (occurrence: US)
  Receive Date: 20250107
  Receipt Date: 20250917
  Transmission Date: 20251021
  Serious: No
  Sender: BRISTOL-MYERS SQUIBB COMPANY
  Company Number: US-BRISTOL-MYERS SQUIBB COMPANY-2025-002081

PATIENT
  Age: 54 Year
  Sex: Female

DRUGS (5)
  1. ORENCIA [Suspect]
     Active Substance: ABATACEPT
     Indication: Rheumatoid arthritis
     Dates: start: 202412
  2. ORENCIA [Suspect]
     Active Substance: ABATACEPT
     Dates: start: 202412
  3. ORENCIA [Suspect]
     Active Substance: ABATACEPT
     Dates: start: 202412
  4. ORENCIA [Suspect]
     Active Substance: ABATACEPT
     Dates: start: 202412
  5. CIMZIA [Suspect]
     Active Substance: CERTOLIZUMAB PEGOL
     Indication: Product used for unknown indication

REACTIONS (5)
  - Joint swelling [Unknown]
  - Arthralgia [Unknown]
  - Pain [Unknown]
  - Dermatitis allergic [Unknown]
  - Pruritus [Unknown]

NARRATIVE: CASE EVENT DATE: 20241201
